FAERS Safety Report 18927940 (Version 1)
Quarter: 2021Q1

REPORT INFORMATION
  Report Type: Spontaneous
  Country: US (occurrence: US)
  Receive Date: 20210223
  Receipt Date: 20210223
  Transmission Date: 20210420
  Serious: Yes (Other)
  Sender: FDA-Public Use
  Company Number: US-BRACCO-2021US00583

PATIENT
  Age: 73 Year
  Sex: Male

DRUGS (1)
  1. BARIUM SULPHATE [Suspect]
     Active Substance: BARIUM SULFATE
     Indication: BARIUM SWALLOW
     Dosage: UNK UNK, SINGLE
     Route: 048

REACTIONS (2)
  - Atelectasis [Recovering/Resolving]
  - Aspiration [Unknown]
